FAERS Safety Report 13883877 (Version 1)
Quarter: 2017Q3

REPORT INFORMATION
  Report Type: Spontaneous
  Country: US (occurrence: US)
  Receive Date: 20170815
  Receipt Date: 20170815
  Transmission Date: 20171127
  Serious: Yes (Death)
  Sender: FDA-Public Use
  Company Number: None

PATIENT
  Age: 70 Year
  Sex: Male

DRUGS (1)
  1. TADALAFIL IND EXEMPT: APPROVED PRODUCT [Suspect]
     Active Substance: TADALAFIL

REACTIONS (3)
  - Failure to thrive [None]
  - Irritable bowel syndrome [None]
  - Asthenia [None]

NARRATIVE: CASE EVENT DATE: 20170813
